FAERS Safety Report 8337262-4 (Version None)
Quarter: 2012Q2

REPORT INFORMATION
  Report Type: 
  Country: None (occurrence: None)
  Receive Date: 20120504
  Receipt Date: 20120424
  Transmission Date: 20120825
  Serious: Yes (Hospitalization)
  Sender: FDA-Public Use
  Company Number: PL-JNJFOC-20120411697

PATIENT
  Sex: Female
  Weight: 57 kg

DRUGS (2)
  1. INFLIXIMAB, RECOMBINANT [Suspect]
     Route: 042
     Dates: start: 20110718
  2. INFLIXIMAB, RECOMBINANT [Suspect]
     Indication: RHEUMATOID ARTHRITIS
     Route: 042
     Dates: start: 20110801, end: 20110801

REACTIONS (5)
  - MUSCULAR WEAKNESS [None]
  - HEADACHE [None]
  - POLYNEUROPATHY [None]
  - TINNITUS [None]
  - DYSPHAGIA [None]
